FAERS Safety Report 10005105 (Version 2)
Quarter: 2014Q1

REPORT INFORMATION
  Report Type: Spontaneous
  Country: US (occurrence: US)
  Receive Date: 20140312
  Receipt Date: 20140312
  Transmission Date: 20141002
  Serious: No
  Sender: FDA-Public Use
  Company Number: US-GILEAD-2012-0061595

PATIENT
  Age: 28 Year
  Sex: Female
  Weight: 61.68 kg

DRUGS (5)
  1. LETAIRIS [Suspect]
     Indication: PULMONARY HYPERTENSION
     Dosage: 5 MG, UNK
     Route: 048
     Dates: start: 20120822, end: 20120922
  2. LETAIRIS [Suspect]
     Indication: SYSTEMIC LUPUS ERYTHEMATOSUS
     Dosage: 5 MG, UNK
     Route: 048
     Dates: start: 201209, end: 20120922
  3. TRACLEER /01587701/ [Suspect]
     Indication: PRODUCT USED FOR UNKNOWN INDICATION
  4. CELLCEPT                           /01275102/ [Concomitant]
  5. ADCIRCA [Concomitant]

REACTIONS (3)
  - Chest discomfort [Not Recovered/Not Resolved]
  - Liver function test abnormal [Recovered/Resolved]
  - Dyspnoea [Not Recovered/Not Resolved]
